FAERS Safety Report 7985443-1 (Version None)
Quarter: 2011Q4

REPORT INFORMATION
  Report Type: 
  Country: None (occurrence: None)
  Receive Date: 20111214
  Receipt Date: 20111207
  Transmission Date: 20120403
  Serious: Yes (Other)
  Sender: FDA-Public Use
  Company Number: DSA_48181_2011

PATIENT
  Age: 50 Year
  Sex: Male

DRUGS (1)
  1. BUPROPION HYDROCHLORIDE [Suspect]
     Indication: PRODUCT USED FOR UNKNOWN INDICATION
     Dosage: (300 MG QD ORAL), (DF ORAL)
     Route: 048

REACTIONS (3)
  - RED BLOOD CELL COUNT DECREASED [None]
  - SEX HORMONE BINDING GLOBULIN INCREASED [None]
  - BLOOD BILIRUBIN INCREASED [None]
